FAERS Safety Report 5731692-2 (Version None)
Quarter: 2008Q2

REPORT INFORMATION
  Report Type: 
  Country: None (occurrence: None)
  Receive Date: 20080508
  Receipt Date: 20080501
  Transmission Date: 20081010
  Serious: Yes (Death)
  Sender: FDA-Public Use
  Company Number: US-ELI_LILLY_AND_COMPANY-US200805000155

PATIENT
  Age: 52 Year
  Sex: Male

DRUGS (8)
  1. GEMZAR [Suspect]
     Indication: OESOPHAGEAL CANCER METASTATIC
     Dosage: 2000 MG, UNK
     Dates: start: 20070917
  2. GEMZAR [Suspect]
     Dosage: 1500 MG, UNK
     Dates: start: 20070924
  3. GEMZAR [Suspect]
     Dosage: 1750 MG, UNK
     Dates: start: 20071008, end: 20071008
  4. XELODA [Concomitant]
     Indication: OESOPHAGEAL CANCER METASTATIC
  5. PREVACID [Concomitant]
  6. DEXAMETHASONE [Concomitant]
  7. OXYCODONE HCL [Concomitant]
  8. HYDROCODONE BITARTRATE [Concomitant]

REACTIONS (2)
  - DEATH [None]
  - DRUG INTOLERANCE [None]
